FAERS Safety Report 6717045-9 (Version None)
Quarter: 2010Q2

REPORT INFORMATION
  Report Type: 
  Country: None (occurrence: None)
  Receive Date: 20100510
  Receipt Date: 20100406
  Transmission Date: 20101027
  Serious: No
  Sender: FDA-Public Use
  Company Number: US-BAYER-201014047BCC

PATIENT
  Age: 68 Year
  Sex: Female
  Weight: 66 kg

DRUGS (5)
  1. ALEVE (CAPLET) [Suspect]
     Indication: ARTHRALGIA
     Dosage: UNIT DOSE: 220 MG
     Route: 048
  2. MOTRIN [Concomitant]
     Route: 065
  3. PREGNAZONE [Concomitant]
     Route: 065
  4. VICODIN [Concomitant]
     Route: 065
  5. TYLENOL-500 [Concomitant]
     Route: 065

REACTIONS (1)
  - ARTHRALGIA [None]
